FAERS Safety Report 9101624 (Version 2)
Quarter: 2013Q1

REPORT INFORMATION
  Report Type: Spontaneous
  Country: US (occurrence: US)
  Receive Date: 20130218
  Receipt Date: 20130320
  Transmission Date: 20140127
  Serious: Yes (Other)
  Sender: FDA-Public Use
  Company Number: US-JNJFOC-20130206338

PATIENT
  Sex: Male
  Weight: 67.13 kg

DRUGS (6)
  1. REMICADE [Suspect]
     Indication: PSORIATIC ARTHROPATHY
     Route: 042
     Dates: start: 200702
  2. REMICADE [Suspect]
     Indication: PSORIATIC ARTHROPATHY
     Route: 042
     Dates: start: 20130124
  3. ENDOCET [Concomitant]
     Indication: PAIN
     Dosage: DOSE AND STRENGHTH: 10/350 MG, FREQUENCY: UPTO 4 AS NEEDED
     Route: 048
     Dates: start: 2004
  4. VALIUM [Concomitant]
     Indication: ANXIETY
     Route: 065
  5. TRAZODONE [Concomitant]
     Indication: INSOMNIA
     Route: 065
  6. ZOFRAN [Concomitant]
     Indication: NAUSEA
     Route: 065

REACTIONS (8)
  - Attention deficit/hyperactivity disorder [Not Recovered/Not Resolved]
  - Abdominal discomfort [Recovering/Resolving]
  - Weight decreased [Unknown]
  - Pain [Not Recovered/Not Resolved]
  - Nausea [Recovering/Resolving]
  - Vomiting [Recovering/Resolving]
  - Diarrhoea [Recovering/Resolving]
  - Infusion related reaction [Recovering/Resolving]
